FAERS Safety Report 16920349 (Version 1)
Quarter: 2019Q4

REPORT INFORMATION
  Report Type: Spontaneous
  Country: US (occurrence: US)
  Receive Date: 20191015
  Receipt Date: 20191015
  Transmission Date: 20200122
  Serious: Yes (Other)
  Sender: FDA-Public Use
  Company Number: NVSC2019US001115

PATIENT
  Age: 42 Year
  Sex: Female

DRUGS (1)
  1. METHYLPREDNISOLONE. [Suspect]
     Active Substance: METHYLPREDNISOLONE
     Indication: LUPUS PNEUMONITIS
     Dosage: UNK
     Route: 042

REACTIONS (2)
  - Product use in unapproved indication [Unknown]
  - Acute kidney injury [Unknown]
